FAERS Safety Report 4401960-5 (Version None)
Quarter: 2004Q3

REPORT INFORMATION
  Report Type: 
  Country: None (occurrence: None)
  Receive Date: 20040714
  Receipt Date: 20040630
  Transmission Date: 20050211
  Serious: Yes (Other)
  Sender: FDA-Public Use
  Company Number: USA040671471

PATIENT
  Age: 67 Year
  Sex: Female

DRUGS (4)
  1. HUMULIN N [Suspect]
     Indication: DIABETES MELLITUS
     Dosage: 29 U DAY
     Dates: start: 19940101
  2. HUMULIN R [Suspect]
     Indication: DIABETES MELLITUS
     Dates: start: 19940101
  3. SPIRIN (ACETYLSALICYLIC ACID) [Concomitant]
  4. DIGOXIN [Concomitant]

REACTIONS (5)
  - BLOOD CHOLESTEROL INCREASED [None]
  - BLOOD GLUCOSE FLUCTUATION [None]
  - CARDIAC ARREST [None]
  - FALL [None]
  - LIMB INJURY [None]
